FAERS Safety Report 8785244 (Version 1)
Quarter: 2012Q4

REPORT INFORMATION
  Report Type: Spontaneous
  Country: US (occurrence: None)
  Receive Date: 20120830
  Receipt Date: 20120830
  Transmission Date: 20130627
  Serious: Yes (Hospitalization, Other)
  Sender: FDA-Public Use
  Company Number: US-1193779

PATIENT
  Age: 84 Year
  Sex: Female

DRUGS (5)
  1. BSS [Suspect]
     Indication: INTRAOCULAR LENS IMPLANT
     Route: 031
     Dates: start: 20120612, end: 20120612
  2. VIGAMOX [Suspect]
     Route: 047
     Dates: start: 20120612, end: 20120619
  3. LOTEMAX [Concomitant]
  4. BROMDAY [Concomitant]
  5. BETADINE [Concomitant]

REACTIONS (2)
  - Endophthalmitis [None]
  - Medication error [None]
